FAERS Safety Report 13511270 (Version 1)
Quarter: 2017Q2

REPORT INFORMATION
  Report Type: Report from Study
  Country: US (occurrence: US)
  Receive Date: 20170503
  Receipt Date: 20170503
  Transmission Date: 20170830
  Serious: Yes (Other)
  Sender: FDA-Public Use
  Company Number: US-BRISTOL-MYERS SQUIBB COMPANY-BMS-2017-029700

PATIENT
  Sex: Male
  Weight: 204.1 kg

DRUGS (1)
  1. APIXABAN [Suspect]
     Active Substance: APIXABAN
     Indication: THROMBOSIS
     Dosage: UNK, BID
     Route: 048

REACTIONS (6)
  - Inappropriate schedule of drug administration [Unknown]
  - Angioedema [Unknown]
  - Tinnitus [Unknown]
  - Chromaturia [Recovering/Resolving]
  - Pain [Unknown]
  - Drug dose omission [Unknown]
